FAERS Safety Report 11596674 (Version 1)
Quarter: 2015Q4

REPORT INFORMATION
  Report Type: Report from Study
  Country: PK (occurrence: PK)
  Receive Date: 20151006
  Receipt Date: 20151006
  Transmission Date: 20160304
  Serious: Yes (Death)
  Sender: FDA-Public Use
  Company Number: PHHY2015PK118686

PATIENT
  Age: 85 Year
  Sex: Female

DRUGS (1)
  1. ACLASTA [Suspect]
     Active Substance: ZOLEDRONIC ACID
     Indication: OSTEOPOROSIS
     Dosage: 1 DF (5 MG/ 100ML), Q12MO
     Route: 042
     Dates: start: 20140506

REACTIONS (2)
  - Pyrexia [Fatal]
  - Pain [Fatal]

NARRATIVE: CASE EVENT DATE: 201405
